FAERS Safety Report 19004431 (Version 1)
Quarter: 2021Q1

REPORT INFORMATION
  Report Type: Spontaneous
  Country: CA (occurrence: CA)
  Receive Date: 20210312
  Receipt Date: 20210312
  Transmission Date: 20210420
  Serious: Yes (Other)
  Sender: FDA-Public Use
  Company Number: CA-PFIZER INC-2020379046

PATIENT
  Age: 69 Year
  Sex: Male

DRUGS (10)
  1. XELJANZ [Suspect]
     Active Substance: TOFACITINIB CITRATE
     Indication: RHEUMATOID ARTHRITIS
     Dosage: 5 MG, 2X/DAY
     Route: 048
     Dates: start: 20200731
  2. CORTISONE [Concomitant]
     Active Substance: CORTISONE
     Dosage: UNK
  3. METHOTREXATE. [Concomitant]
     Active Substance: METHOTREXATE
     Dosage: 25 MG
     Dates: start: 202002
  4. PREGABALIN. [Concomitant]
     Active Substance: PREGABALIN
     Dosage: 1 DF
  5. BISOPROLOL [Concomitant]
     Active Substance: BISOPROLOL
     Dosage: UNK
  6. PREDNISONE. [Concomitant]
     Active Substance: PREDNISONE
     Dosage: 1 DF
  7. RAMIPRIL. [Concomitant]
     Active Substance: RAMIPRIL
     Dosage: UNK
  8. ATORVASTATIN [Concomitant]
     Active Substance: ATORVASTATIN
     Dosage: 1 DF
  9. ELIQUIS [Concomitant]
     Active Substance: APIXABAN
     Dosage: UNK
  10. TOLECTIN [Concomitant]
     Active Substance: TOLMETIN SODIUM
     Dosage: UNK

REACTIONS (2)
  - Throat cancer [Unknown]
  - Condition aggravated [Unknown]
